FAERS Safety Report 24273277 (Version 1)
Quarter: 2024Q3

REPORT INFORMATION
  Report Type: Spontaneous
  Country: RO (occurrence: RO)
  Receive Date: 20240902
  Receipt Date: 20240902
  Transmission Date: 20241016
  Serious: Yes (Disabling)
  Sender: MACLEODS
  Company Number: RO-MLMSERVICE-20240814-PI161719-00323-3

PATIENT

DRUGS (3)
  1. TRIAMCINOLONE [Suspect]
     Active Substance: TRIAMCINOLONE
     Indication: Facet joint syndrome
     Dosage: INTERLAMINAR INJECTATE INCLUDED TRIAMCINOLONE 80 MG WITH 3 CC OF 1% LIDOCAINE + 5 CC OF NACL
     Route: 008
  2. LIDOCAINE [Concomitant]
     Active Substance: LIDOCAINE
     Dosage: INTERLAMINAR INJECTATE INCLUDED TRIAMCINOLONE 80 MG WITH 3 CC OF 1% LIDOCAINE + 5 CC OF NACL
     Route: 008
  3. SODIUM CHLORIDE [Concomitant]
     Active Substance: SODIUM CHLORIDE
     Dosage: INTERLAMINAR INJECTATE INCLUDED TRIAMCINOLONE 80 MG WITH 3 CC OF 1% LIDOCAINE + 5 CC OF NACL
     Route: 008

REACTIONS (5)
  - Generalised anxiety disorder [Recovered/Resolved]
  - Anhedonia [Recovered/Resolved]
  - Weight decreased [Recovered/Resolved]
  - Decreased appetite [Recovered/Resolved]
  - Insomnia [Recovered/Resolved]
